FAERS Safety Report 8004846-2 (Version None)
Quarter: 2011Q4

REPORT INFORMATION
  Report Type: 
  Country: None (occurrence: None)
  Receive Date: 20111223
  Receipt Date: 20111223
  Transmission Date: 20120403
  Serious: Yes (Hospitalization)
  Sender: FDA-Public Use
  Company Number: None

PATIENT
  Sex: Female
  Weight: 86.2 kg

DRUGS (3)
  1. TIZANIDINE HCL [Suspect]
     Dosage: 4MG
     Route: 048
  2. TIZANIDINE HCL [Interacting]
     Route: 048
  3. LISINOPRIL [Concomitant]
     Dosage: 40MG
     Route: 048

REACTIONS (1)
  - HYPOTENSION [None]
